FAERS Safety Report 7076396-1 (Version None)
Quarter: 2010Q4

REPORT INFORMATION
  Report Type: 
  Country: None (occurrence: None)
  Receive Date: 20101021
  Receipt Date: 20101012
  Transmission Date: 20110411
  Serious: Yes (Hospitalization)
  Sender: FDA-Public Use
  Company Number: TCI2010A04418

PATIENT
  Age: 76 Year
  Sex: Male

DRUGS (12)
  1. ACTOS [Suspect]
     Indication: DIABETES MELLITUS
     Dosage: 30 MG(30 MG, 1 D); 15 MG(15 MG, 1 IN 1 D); 15 MG(15 MG, 1 IN 1 D)PER ORAL, SEVERAL YEARS EARLIER
     Route: 048
     Dates: end: 20100622
  2. ACTOS [Suspect]
     Indication: DIABETES MELLITUS
     Dosage: 30 MG(30 MG, 1 D); 15 MG(15 MG, 1 IN 1 D); 15 MG(15 MG, 1 IN 1 D)PER ORAL, SEVERAL YEARS EARLIER
     Route: 048
     Dates: start: 20100623, end: 20100809
  3. ACTOS [Suspect]
     Indication: DIABETES MELLITUS
     Dosage: 30 MG(30 MG, 1 D); 15 MG(15 MG, 1 IN 1 D); 15 MG(15 MG, 1 IN 1 D)PER ORAL, SEVERAL YEARS EARLIER
     Route: 048
     Dates: start: 20100817, end: 20100818
  4. PICIBANIL (STREPTOCOCCUS PYOGENES) [Suspect]
     Dates: start: 20100803
  5. LENTINAN [Suspect]
     Dates: start: 20100803
  6. OLMESARTAN MEDOXOMIL [Concomitant]
  7. AMLODIPINE [Concomitant]
  8. VANCOMYCIN HYDROCHLORIDE [Concomitant]
  9. NOVOLOG [Concomitant]
  10. PROPOFOL [Concomitant]
  11. SEVOFLURANE [Concomitant]
  12. NELBIS (METFORMIN HYDROCHLORIDE) [Concomitant]

REACTIONS (5)
  - POST PROCEDURAL INFECTION [None]
  - PYOTHORAX [None]
  - STAPHYLOCOCCAL INFECTION [None]
  - STREPTOCOCCAL INFECTION [None]
  - URTICARIA [None]
